FAERS Safety Report 18530450 (Version 4)
Quarter: 2021Q3

REPORT INFORMATION
  Report Type: Report from Study
  Country: None (occurrence: US)
  Receive Date: 20201121
  Receipt Date: 20210923
  Transmission Date: 20211014
  Serious: No
  Sender: FDA-Public Use
  Company Number: US-ABBVIE-19K-163-3208593-00

PATIENT
  Sex: Male
  Weight: 114.86 kg

DRUGS (56)
  1. VENCLEXTA [Suspect]
     Active Substance: VENETOCLAX
     Indication: CHRONIC LYMPHOCYTIC LEUKAEMIA
     Dosage: WEEK 1
     Route: 048
     Dates: start: 201906, end: 201906
  2. VENCLEXTA [Suspect]
     Active Substance: VENETOCLAX
     Dosage: WEEK 3
     Route: 048
     Dates: start: 201906, end: 201906
  3. ZOSYN [Concomitant]
     Active Substance: PIPERACILLIN SODIUM\TAZOBACTAM SODIUM
     Indication: LUNG DISORDER
  4. LASIX [Concomitant]
     Active Substance: FUROSEMIDE
     Indication: PRODUCT USED FOR UNKNOWN INDICATION
     Dosage: 40 MG, INJECTABLE, IV PUSH
     Route: 042
     Dates: start: 20190319, end: 20190319
  5. BUDESONIDE. [Concomitant]
     Active Substance: BUDESONIDE
     Indication: PRODUCT USED FOR UNKNOWN INDICATION
     Dosage: 32MCG/ INH NASAL SPRAY, 2 SPRAY, NASAL AC BREAKFAST
     Route: 045
  6. CRANBERRY. [Concomitant]
     Active Substance: CRANBERRY
     Indication: PRODUCT USED FOR UNKNOWN INDICATION
     Dosage: ORAL CAPSULE BID
     Route: 048
  7. VENCLEXTA [Suspect]
     Active Substance: VENETOCLAX
     Route: 048
  8. VENCLEXTA [Suspect]
     Active Substance: VENETOCLAX
     Route: 048
  9. AMOXICILLIN. [Concomitant]
     Active Substance: AMOXICILLIN
     Indication: PRODUCT USED FOR UNKNOWN INDICATION
     Dosage: 875 MG?125 MG 1 TAB, PO, EVERY 12 HOURS, X 3 DAY(S)
     Route: 048
  10. ROCEPHIN [Concomitant]
     Active Substance: CEFTRIAXONE SODIUM
     Indication: PNEUMONIA
     Dosage: 1000 MG INJECTABLE, IV, ONCE
     Route: 042
     Dates: start: 20190505, end: 20190505
  11. ALBUTEROL. [Concomitant]
     Active Substance: ALBUTEROL
     Indication: PRODUCT USED FOR UNKNOWN INDICATION
     Dosage: 0.083 % SOLUTION, 3 ML, NEBULIZATON, ONCE
     Route: 065
     Dates: start: 20190505, end: 20190505
  12. LOSARTAN. [Concomitant]
     Active Substance: LOSARTAN
     Route: 048
  13. ZOSYN [Concomitant]
     Active Substance: PIPERACILLIN SODIUM\TAZOBACTAM SODIUM
     Indication: INFECTION
     Dosage: 3,375 MG, INJECTABLE, IV, ONCE
     Route: 042
     Dates: start: 20190319, end: 20190319
  14. IBRUTINIB [Concomitant]
     Active Substance: IBRUTINIB
     Indication: PRODUCT USED FOR UNKNOWN INDICATION
     Dosage: 420 MG 1 TAB EACH DOSE, P0, DAILY
     Route: 048
  15. FENTANYL. [Concomitant]
     Active Substance: FENTANYL
     Indication: PRODUCT USED FOR UNKNOWN INDICATION
     Dosage: 50 MCG, IV POSH
     Route: 042
     Dates: start: 20180711, end: 20180711
  16. SODIUM CHLORIDE. [Concomitant]
     Active Substance: SODIUM CHLORIDE
     Dosage: 1,000 ML, INJECTABLE, IV, ONCE
     Route: 042
     Dates: start: 20180615, end: 20180615
  17. REGADENOSON [Concomitant]
     Active Substance: REGADENOSON
     Indication: PRODUCT USED FOR UNKNOWN INDICATION
     Dosage: 0.4 MG IV PUSH
     Route: 042
     Dates: start: 20190522, end: 20190522
  18. NEUTRA?PHOS [Concomitant]
     Active Substance: POTASSIUM PHOSPHATE, DIBASIC\POTASSIUM PHOSPHATE, MONOBASIC\SODIUM PHOSPHATE, DIBASIC\SODIUM PHOSPHATE, MONOBASIC
     Indication: PRODUCT USED FOR UNKNOWN INDICATION
     Dosage: 1 PKT, POWDER?ORAL, PO
     Route: 048
     Dates: start: 20190505, end: 20190505
  19. ALBUTEROL IPRATROPIUM [Concomitant]
     Active Substance: ALBUTEROL\IPRATROPIUM
     Indication: PRODUCT USED FOR UNKNOWN INDICATION
  20. LOPERAMIDE [Concomitant]
     Active Substance: LOPERAMIDE
     Indication: PRODUCT USED FOR UNKNOWN INDICATION
  21. DUONEB [Concomitant]
     Active Substance: ALBUTEROL SULFATE\IPRATROPIUM BROMIDE
     Dosage: 3 M L, NEB SOLUTION, NEBULIZATION
     Dates: start: 20190319, end: 20190319
  22. VENCLEXTA [Suspect]
     Active Substance: VENETOCLAX
     Route: 048
  23. LOSARTAN. [Concomitant]
     Active Substance: LOSARTAN
     Indication: PRODUCT USED FOR UNKNOWN INDICATION
     Dosage: 12.5 MG DAILY
     Route: 048
  24. SUDAFED [Concomitant]
     Active Substance: PSEUDOEPHEDRINE HYDROCHLORIDE
     Indication: SINUS CONGESTION
     Dosage: 60 MG TAB PO, EVERY 6 HOURS
     Route: 048
     Dates: start: 20190326, end: 20190326
  25. SUDAFED [Concomitant]
     Active Substance: PSEUDOEPHEDRINE HYDROCHLORIDE
     Dosage: 30 MG, TAB, PO, EVERY 6 HOURS
     Route: 048
     Dates: start: 20190321, end: 20190323
  26. NYSTATIN. [Concomitant]
     Active Substance: NYSTATIN
     Indication: PRODUCT USED FOR UNKNOWN INDICATION
     Dosage: 1,000,000 UNITS 10 ML EACH DOSE, PO, FOUR TIMES DAILY, X 7 DAY(S), SUSPENSION
     Route: 048
  27. ZOFRAN [Concomitant]
     Active Substance: ONDANSETRON HYDROCHLORIDE
     Indication: VOMITING
  28. METFORMIN [Concomitant]
     Active Substance: METFORMIN HYDROCHLORIDE
     Indication: PRODUCT USED FOR UNKNOWN INDICATION
     Dosage: 500 MG ORAL TABLET PO, DAILY
     Route: 048
  29. CHONDROITIN [Concomitant]
     Active Substance: CHONDROITIN
     Indication: PRODUCT USED FOR UNKNOWN INDICATION
     Dosage: 1 TAB, PO, BID
     Route: 048
  30. ETODOLAC. [Concomitant]
     Active Substance: ETODOLAC
     Indication: PRODUCT USED FOR UNKNOWN INDICATION
     Dosage: 500 MG ORAL TABLET BID
     Route: 048
  31. FUROSEMIDE. [Concomitant]
     Active Substance: FUROSEMIDE
     Indication: PRODUCT USED FOR UNKNOWN INDICATION
  32. IBRUTINIB [Concomitant]
     Active Substance: IBRUTINIB
     Dosage: 420 MG 3 CAP EACH DOSE, PO, DAILY, X 30 DAY(S)
     Route: 048
  33. MONTELUKAST [Concomitant]
     Active Substance: MONTELUKAST SODIUM
     Indication: PRODUCT USED FOR UNKNOWN INDICATION
     Dosage: 10 MG ORAL TABLET
     Route: 048
  34. OSTEO BI?FLEX [Concomitant]
     Active Substance: CHONDROITIN SULFATE A\GLUCOSAMINE
     Indication: PRODUCT USED FOR UNKNOWN INDICATION
     Dosage: 1 TAB, PO, BID
     Route: 048
  35. VENCLEXTA [Suspect]
     Active Substance: VENETOCLAX
     Indication: B-CELL SMALL LYMPHOCYTIC LYMPHOMA
     Dosage: WEEK 2
     Route: 048
     Dates: start: 201906, end: 201906
  36. FLULAVAL [Concomitant]
     Indication: PRODUCT USED FOR UNKNOWN INDICATION
     Dosage: 0.5ML IM VACCINE ONCE
     Route: 030
     Dates: start: 20191008, end: 20191008
  37. IMODIUM [Concomitant]
     Active Substance: LOPERAMIDE HYDROCHLORIDE
     Indication: DIARRHOEA
     Dosage: PRN
     Route: 048
  38. ZOFRAN [Concomitant]
     Active Substance: ONDANSETRON HYDROCHLORIDE
     Indication: NAUSEA
     Dosage: 8 MG ORAL TABLET PO, EVERY 12
     Route: 048
  39. VENCLEXTA [Suspect]
     Active Substance: VENETOCLAX
     Route: 048
     Dates: start: 20190706
  40. INFLUENZA [Concomitant]
     Active Substance: INFLUENZA VIRUS VACCINE
     Indication: PRODUCT USED FOR UNKNOWN INDICATION
  41. DOXYCYCLINE. [Concomitant]
     Active Substance: DOXYCYCLINE
     Indication: PRODUCT USED FOR UNKNOWN INDICATION
     Dosage: 100 MG ORAL TAB PO, BID, X 7 DAY(S)
     Route: 048
  42. FENTANYL. [Concomitant]
     Active Substance: FENTANYL
     Dosage: 50 MCG, IV POSH
     Route: 042
     Dates: start: 20180606, end: 20180711
  43. SODIUM CHLORIDE. [Concomitant]
     Active Substance: SODIUM CHLORIDE
     Indication: PRODUCT USED FOR UNKNOWN INDICATION
     Dosage: 1,000 ML, INJECTABLE, IV, ONCE
     Route: 042
     Dates: start: 20180618, end: 20180618
  44. AMOXICILLIN AND CLAVULANATE [Concomitant]
     Active Substance: AMOXICILLIN\CLAVULANIC ACID
     Indication: PRODUCT USED FOR UNKNOWN INDICATION
     Dosage: 875 MG?125 MG ORAL TABLET) 1 TAB, PO, EVERY 12 HOURS, X 3 DAY(S)
     Route: 048
  45. DUONEB [Concomitant]
     Active Substance: ALBUTEROL SULFATE\IPRATROPIUM BROMIDE
     Indication: PRODUCT USED FOR UNKNOWN INDICATION
     Dosage: 0.5 MG?2.5 MG/3 ML INHALATION SOLUTION
     Route: 055
     Dates: start: 20190319, end: 20190319
  46. CODEINE GUAIFENESIN [Concomitant]
     Active Substance: CODEINE PHOSPHATE\GUAIFENESIN
     Indication: PRODUCT USED FOR UNKNOWN INDICATION
     Dosage: 10 G?100 MG/5 ML ORAL SYRUP
     Route: 048
  47. LORATADINE. [Concomitant]
     Active Substance: LORATADINE
     Indication: PRODUCT USED FOR UNKNOWN INDICATION
     Dosage: 10 MG ORAL TABLET DAILY
     Route: 048
  48. ROCEPHIN [Concomitant]
     Active Substance: CEFTRIAXONE SODIUM
     Indication: INFECTION
  49. VANCOMYCIN [Concomitant]
     Active Substance: VANCOMYCIN
     Indication: PROPHYLAXIS
     Dosage: 2,000 MG, IV, ONCE
     Route: 042
     Dates: start: 20190319, end: 20190319
  50. VANCOMYCIN [Concomitant]
     Active Substance: VANCOMYCIN
     Indication: LUNG DISORDER
  51. POLYMIX [Concomitant]
     Indication: PRODUCT USED FOR UNKNOWN INDICATION
     Dosage: 2 DROPS, BOTH EARS, FOUR TIMES DAILY, X 10 DAYS, 1%?0.35%?10,000 UNITS/ML OTIC SUSPENSION
  52. ALLOPURINOL. [Concomitant]
     Active Substance: ALLOPURINOL
     Indication: PRODUCT USED FOR UNKNOWN INDICATION
     Dosage: 300 MG 1TAB EACH DOSE, PO, DAILY
     Route: 048
  53. ONDANSETRON [Concomitant]
     Active Substance: ONDANSETRON
     Indication: PRODUCT USED FOR UNKNOWN INDICATION
  54. MIDAZOLAM. [Concomitant]
     Active Substance: MIDAZOLAM
     Indication: PRODUCT USED FOR UNKNOWN INDICATION
     Dosage: 1 MG, IV PUSH
     Route: 042
     Dates: start: 20180606, end: 20180606
  55. ELITEK [Concomitant]
     Active Substance: RASBURICASE
     Indication: PRODUCT USED FOR UNKNOWN INDICATION
     Dosage: 6 MG IV INJECTABLE, ONCE, INFUSE OVER 30MINUTES
     Route: 042
     Dates: start: 20180619, end: 20180619
  56. GABAPENTIN. [Concomitant]
     Active Substance: GABAPENTIN
     Indication: PRODUCT USED FOR UNKNOWN INDICATION
     Dosage: 300 MG ORAL CAPSULE
     Route: 048

REACTIONS (3)
  - Memory impairment [Unknown]
  - Pain in extremity [Unknown]
  - Somnolence [Unknown]

NARRATIVE: CASE EVENT DATE: 2019
